FAERS Safety Report 8387532-9 (Version None)
Quarter: 2012Q2

REPORT INFORMATION
  Report Type: 
  Country: None (occurrence: None)
  Receive Date: 20120525
  Receipt Date: 20120522
  Transmission Date: 20120825
  Serious: Yes (Other)
  Sender: FDA-Public Use
  Company Number: PHEH2012US010605

PATIENT
  Sex: Male

DRUGS (16)
  1. GABAPENTIN [Concomitant]
     Dosage: 800 MG, UNK
  2. DONEPEZIL HCL [Concomitant]
     Dosage: 10 MG, UNK
  3. KLONOPIN [Concomitant]
     Dosage: 1 MG, UNK
  4. PERCOCET [Concomitant]
     Dosage: 10/325 MG, UNK
  5. BACLOFEN [Concomitant]
     Dosage: 10 MG, UNK
  6. LOVASTATIN [Concomitant]
     Dosage: 20 MG, UNK
  7. JANUMET [Concomitant]
     Dosage: 50/1000 MG, UNK
  8. GILENYA [Suspect]
     Dosage: 0.5 MG, QD
     Route: 048
  9. VITAMIN D [Concomitant]
     Dosage: 1000 IU, UNK
  10. ASPIRIN [Concomitant]
     Dosage: 81 MG, UNK
  11. LOVAZA [Concomitant]
     Dosage: 1000 IU, UNK
  12. LYRICA [Concomitant]
     Dosage: 150 MG, UNK
  13. VENLAFAXINE [Concomitant]
     Dosage: 150 MG, UNK
  14. MS CONTIN [Concomitant]
     Dosage: 60 MG, UNK
  15. TEGRETOL [Concomitant]
     Dosage: 100 MG, UNK
  16. ATENOLOL [Concomitant]
     Dosage: 100 MG, UNK

REACTIONS (1)
  - BLOOD GLUCOSE INCREASED [None]
